FAERS Safety Report 6740137-5 (Version None)
Quarter: 2010Q2

REPORT INFORMATION
  Report Type: 
  Country: None (occurrence: None)
  Receive Date: 20100525
  Receipt Date: 20100517
  Transmission Date: 20101027
  Serious: Yes (Disabling, Other)
  Sender: FDA-Public Use
  Company Number: NL-GENZYME-CERZ-1001301

PATIENT
  Sex: Male
  Weight: 68 kg

DRUGS (3)
  1. CEREZYME [Suspect]
     Indication: GAUCHER'S DISEASE
     Dosage: 400 U, QW
     Dates: start: 19910415, end: 20091101
  2. HYDROCHLOROTHIAZIDE [Concomitant]
     Indication: HYPERTENSION
     Dosage: 15 MG, QD
  3. COZAAR [Concomitant]
     Indication: HYPERTENSION
     Dosage: 50 MG, QD

REACTIONS (4)
  - GAUCHER'S DISEASE [None]
  - OSTEOPOROSIS [None]
  - PAIN [None]
  - SPINAL COMPRESSION FRACTURE [None]
